FAERS Safety Report 19688947 (Version 1)
Quarter: 2021Q3

REPORT INFORMATION
  Report Type: Spontaneous
  Country: US (occurrence: US)
  Receive Date: 20210812
  Receipt Date: 20210812
  Transmission Date: 20211014
  Serious: Yes (Other)
  Sender: FDA-Public Use
  Company Number: US-SA-2021SA261041

PATIENT
  Sex: Male

DRUGS (1)
  1. UNISOM SLEEPTABS [Suspect]
     Active Substance: DOXYLAMINE SUCCINATE
     Route: 065

REACTIONS (4)
  - Drug resistance [Unknown]
  - Vomiting [Unknown]
  - Dependence [Unknown]
  - Pain [Unknown]
